FAERS Safety Report 7993419-3 (Version None)
Quarter: 2011Q4

REPORT INFORMATION
  Report Type: 
  Country: None (occurrence: None)
  Receive Date: 20111219
  Receipt Date: 20110817
  Transmission Date: 20120403
  Serious: No
  Sender: FDA-Public Use
  Company Number: US-ASTRAZENECA-2011SE49330

PATIENT
  Age: 67 Year
  Sex: Male

DRUGS (20)
  1. TESTOTERONE CYPIONATE [Concomitant]
  2. FISH OIL [Concomitant]
  3. CRATAEGUS [Concomitant]
  4. OMEPRAZOLE+SODIUMBICAR [Concomitant]
  5. ROSUVASTATIN CALCIUM [Suspect]
     Route: 048
  6. FIORICET [Concomitant]
  7. OMEPRAZOLE [Concomitant]
  8. DICLOFENAC [Concomitant]
  9. DOUBLE SALT DENTAL ADHESIVE CREAM [Suspect]
     Indication: DENTURE WEARER
     Route: 004
  10. ZOLPIDEM TARTRATE [Concomitant]
  11. COTRIM [Concomitant]
  12. ALLEGRA-D 12 HOUR [Concomitant]
  13. PIMECROLIMUS [Concomitant]
  14. UNKNOWN [Concomitant]
  15. METHOCARBOMOL [Concomitant]
  16. HYDROCODONE BITARTRATE + ACETAMINOPHEN [Concomitant]
  17. TRIPLE SALT DENTAL ADHESIVE CREAM [Suspect]
     Indication: DENTURE WEARER
     Route: 004
     Dates: start: 19960101
  18. PREDNISONE TAB [Concomitant]
  19. LISINOPRIL [Concomitant]
  20. CURCUMIN [Concomitant]

REACTIONS (25)
  - PALPITATIONS [None]
  - METAL POISONING [None]
  - ANAEMIA [None]
  - CHEST DISCOMFORT [None]
  - ABDOMINAL DISTENSION [None]
  - CONSTIPATION [None]
  - HEADACHE [None]
  - HYPOAESTHESIA [None]
  - GINGIVAL DISORDER [None]
  - FATIGUE [None]
  - DIZZINESS [None]
  - ORAL DISORDER [None]
  - STRESS [None]
  - DRY SKIN [None]
  - SINUSITIS [None]
  - DYSPNOEA [None]
  - HYPERTENSION [None]
  - PAIN [None]
  - WEIGHT DECREASED [None]
  - ANXIETY [None]
  - PAIN IN EXTREMITY [None]
  - INSOMNIA [None]
  - NEUROPATHY PERIPHERAL [None]
  - PARAESTHESIA [None]
  - IRON DEFICIENCY [None]
